FAERS Safety Report 8368204-3 (Version None)
Quarter: 2012Q2

REPORT INFORMATION
  Report Type: 
  Country: None (occurrence: None)
  Receive Date: 20120517
  Receipt Date: 20120508
  Transmission Date: 20120825
  Serious: Yes (Other)
  Sender: FDA-Public Use
  Company Number: US-ALLERGAN-1206551US

PATIENT
  Age: 44 Year
  Sex: Female

DRUGS (3)
  1. BOTOX COSMETIC [Suspect]
     Dosage: 28 UNITS, SINGLE
     Route: 030
     Dates: start: 20111117, end: 20111117
  2. BOTOX COSMETIC [Suspect]
     Indication: SKIN WRINKLING
     Dosage: 22 UNITS, SINGLE
     Route: 030
     Dates: start: 20090122, end: 20090122
  3. BOTOX COSMETIC [Suspect]
     Dosage: 28 UNITS, SINGLE
     Route: 030
     Dates: start: 20120410, end: 20120410

REACTIONS (9)
  - LACRIMATION DECREASED [None]
  - DYSPNOEA [None]
  - FACIAL PARESIS [None]
  - PARAESTHESIA [None]
  - FATIGUE [None]
  - HYPOAESTHESIA [None]
  - MUSCULAR WEAKNESS [None]
  - DRUG HYPERSENSITIVITY [None]
  - APTYALISM [None]
